FAERS Safety Report 26163190 (Version 1)
Quarter: 2025Q4

REPORT INFORMATION
  Report Type: Spontaneous
  Country: CN (occurrence: CN)
  Receive Date: 20251216
  Receipt Date: 20251216
  Transmission Date: 20260118
  Serious: Yes (Other)
  Sender: PFIZER
  Company Number: CN-PFIZER INC-PV202500146266

PATIENT
  Age: 86 Year
  Sex: Male
  Weight: 50 kg

DRUGS (3)
  1. LORLATINIB [Suspect]
     Active Substance: LORLATINIB
     Indication: Lung cancer metastatic
     Dosage: 100 MG, 1X/DAY
     Route: 048
     Dates: start: 20250908, end: 20251111
  2. COMPOUND ALPHA KETOACID [Concomitant]
     Indication: Chronic kidney disease
     Dosage: 2.52 G, 3X/DAY
     Route: 048
     Dates: start: 20251027, end: 20251211
  3. HERBALS [Concomitant]
     Active Substance: HERBALS
     Indication: Chronic kidney disease
     Dosage: 4 DF, 3X/DAY
     Route: 048
     Dates: start: 20250801, end: 20251211

REACTIONS (2)
  - Renal failure [Recovering/Resolving]
  - Condition aggravated [Recovering/Resolving]

NARRATIVE: CASE EVENT DATE: 20251111
